FAERS Safety Report 9604355 (Version 2)
Quarter: 2013Q4

REPORT INFORMATION
  Report Type: Spontaneous
  Country: TR (occurrence: TR)
  Receive Date: 20131008
  Receipt Date: 20131226
  Transmission Date: 20140711
  Serious: Yes (Hospitalization)
  Sender: FDA-Public Use
  Company Number: PHHY2013GB108895

PATIENT
  Age: 35 Day
  Sex: Male

DRUGS (4)
  1. OCTREOTIDE [Suspect]
     Indication: HYPERINSULINISM
     Dosage: UNK UKN, UNK
  2. HYDROCHLOROTHIAZIDE [Suspect]
  3. NIFEDIPINE [Suspect]
  4. DIAZOXIDE [Suspect]

REACTIONS (2)
  - Long QT syndrome [Recovered/Resolved]
  - Hypoglycaemia [Unknown]
